FAERS Safety Report 4672984-8 (Version None)
Quarter: 2005Q2

REPORT INFORMATION
  Report Type: 
  Country: None (occurrence: None)
  Receive Date: 20050524
  Receipt Date: 20050517
  Transmission Date: 20051028
  Serious: Yes (Life-Threatening, Hospitalization)
  Sender: FDA-Public Use
  Company Number: DE-MERCK-0505DEU00123

PATIENT
  Age: 64 Year
  Sex: Male

DRUGS (4)
  1. VALDECOXIB [Suspect]
     Indication: BACK PAIN
     Route: 048
     Dates: start: 20050404, end: 20050401
  2. VYTORIN [Suspect]
     Indication: LIPIDS INCREASED
     Route: 048
     Dates: start: 20050304, end: 20050408
  3. VASOTEC [Concomitant]
     Indication: HYPERTENSION
     Route: 048
  4. INSULIN ASPART [Concomitant]
     Indication: DIABETES MELLITUS
     Route: 058

REACTIONS (4)
  - BACK PAIN [None]
  - PARESIS [None]
  - RENAL FAILURE ACUTE [None]
  - RHABDOMYOLYSIS [None]
